FAERS Safety Report 5093808-3 (Version None)
Quarter: 2006Q3

REPORT INFORMATION
  Report Type: 
  Country: None (occurrence: None)
  Receive Date: 20060829
  Receipt Date: 20060829
  Transmission Date: 20061208
  Serious: Yes (Hospitalization)
  Sender: FDA-Public Use
  Company Number: None

PATIENT
  Sex: Male
  Weight: 103 kg

DRUGS (10)
  1. IRINOTECAN HCL [Suspect]
     Indication: GLIOBLASTOMA MULTIFORME
     Dosage: 125MG/M2 DAY 1, 8, 22, 29 IV
     Route: 042
  2. TEMODAR [Suspect]
     Indication: GLIOBLASTOMA MULTIFORME
     Dosage: 200MG/M2 DAYS 1-5 PO
     Route: 048
  3. LOTREL [Concomitant]
  4. NEXIUM [Concomitant]
  5. DECADRON [Concomitant]
  6. GLUCOTROL [Concomitant]
  7. CALCIUM PLUS [Concomitant]
  8. VITAMIN D [Concomitant]
  9. ZOFRAN [Concomitant]
  10. INNOHEP [Concomitant]

REACTIONS (7)
  - DIPLOPIA [None]
  - HEADACHE [None]
  - HYDROCEPHALUS [None]
  - IMPLANT SITE HAEMORRHAGE [None]
  - NAUSEA [None]
  - VITH NERVE PARALYSIS [None]
  - VOMITING [None]
